FAERS Safety Report 17145304 (Version 1)
Quarter: 2019Q4

REPORT INFORMATION
  Report Type: Spontaneous
  Country: IN (occurrence: IN)
  Receive Date: 20191212
  Receipt Date: 20191212
  Transmission Date: 20200122
  Serious: Yes (Hospitalization)
  Sender: FDA-Public Use
  Company Number: IN-MYLANLABS-2019M1122680

PATIENT
  Age: 35 Year
  Sex: Male

DRUGS (5)
  1. SOLU-MEDROL [Concomitant]
     Active Substance: METHYLPREDNISOLONE SODIUM SUCCINATE
     Indication: IMMUNOSUPPRESSANT DRUG THERAPY
     Dosage: MAINTENANCE THERAPY WITH THREE DOSES
     Route: 065
  2. WYSOLONE [Concomitant]
     Active Substance: PREDNISOLONE
     Indication: IMMUNOSUPPRESSANT DRUG THERAPY
     Dosage: MAINTENANCE THERAPY WITH THREE DOSES
     Route: 065
  3. TACROLIMUS. [Suspect]
     Active Substance: TACROLIMUS
     Indication: IMMUNOSUPPRESSANT DRUG THERAPY
     Dosage: MAINTENANCE THERAPY WITH THREE DOSES
     Route: 065
  4. WYSOLONE [Concomitant]
     Active Substance: PREDNISOLONE
     Dosage: DOSE WAS TAPERED TO 5MG/DAY
     Route: 065
  5. MYCOPHENOLATE MOFETIL. [Concomitant]
     Active Substance: MYCOPHENOLATE MOFETIL
     Indication: IMMUNOSUPPRESSANT DRUG THERAPY
     Dosage: MAINTENANCE THERAPY WITH THREE DOSES
     Route: 065

REACTIONS (5)
  - Renal impairment [Recovering/Resolving]
  - Fluid imbalance [Recovered/Resolved]
  - Toxicity to various agents [Recovering/Resolving]
  - Blood electrolytes abnormal [Recovered/Resolved]
  - Demyelinating polyneuropathy [Recovering/Resolving]
